FAERS Safety Report 4540497-X (Version None)
Quarter: 2004Q4

REPORT INFORMATION
  Report Type: 
  Country: None (occurrence: None)
  Receive Date: 20041228
  Receipt Date: 20041217
  Transmission Date: 20050328
  Serious: Yes (Hospitalization)
  Sender: FDA-Public Use
  Company Number: 2004114857

PATIENT
  Age: 54 Year
  Sex: Female
  Weight: 86.1834 kg

DRUGS (1)
  1. LISTERINE (MENTHOL, METHYL, SALICYLATE, EUCALYPTOL, THYMOL) [Suspect]
     Indication: STOMATITIS
     Dosage: UNSPECIFIED AMT NOW AND THEN, ORAL
     Route: 048

REACTIONS (2)
  - ABDOMINAL PAIN [None]
  - CHOLELITHIASIS [None]
